FAERS Safety Report 17703548 (Version 2)
Quarter: 2020Q2

REPORT INFORMATION
  Report Type: Spontaneous
  Country: FR (occurrence: FR)
  Receive Date: 20200424
  Receipt Date: 20200514
  Transmission Date: 20200714
  Serious: Yes (Hospitalization)
  Sender: FDA-Public Use
  Company Number: NVSC2020FR110036

PATIENT
  Age: 78 Year
  Sex: Male
  Weight: 96 kg

DRUGS (12)
  1. ANORO [Concomitant]
     Active Substance: UMECLIDINIUM BROMIDE\VILANTEROL TRIFENATATE
     Indication: PRODUCT USED FOR UNKNOWN INDICATION
     Dosage: 1 DF
     Route: 055
  2. LINEZOLID. [Suspect]
     Active Substance: LINEZOLID
     Indication: LOCALISED INFECTION
     Dosage: 1 DF, QD
     Route: 048
     Dates: start: 20191213, end: 20200110
  3. LASILIX [Concomitant]
     Active Substance: FUROSEMIDE
     Indication: ISCHAEMIC CARDIOMYOPATHY
     Dosage: 10 MG, QD
     Route: 048
  4. ALLOPURINOL. [Concomitant]
     Active Substance: ALLOPURINOL
     Indication: PRODUCT USED FOR UNKNOWN INDICATION
     Dosage: 100 MG, QD
     Route: 048
  5. COVERAM [Concomitant]
     Active Substance: AMLODIPINE\PERINDOPRIL
     Indication: ISCHAEMIC CARDIOMYOPATHY
     Dosage: 1 DF, QD
     Route: 048
  6. RILMENIDINE [Concomitant]
     Active Substance: RILMENIDINE
     Indication: ISCHAEMIC CARDIOMYOPATHY
     Dosage: 2 MG, QD
     Route: 048
  7. IPRATROPIUM BROMIDE\FENOTEROL HYDROBROMIDE [Concomitant]
     Active Substance: FENOTEROL HYDROBROMIDE\IPRATROPIUM BROMIDE
     Indication: PRODUCT USED FOR UNKNOWN INDICATION
     Dosage: 3 DF
     Route: 055
  8. NOVOMIX [Concomitant]
     Active Substance: INSULIN ASPART
     Indication: TYPE 2 DIABETES MELLITUS
     Dosage: 22 IU, QD
     Route: 058
  9. BISOCE [Concomitant]
     Active Substance: BISOPROLOL
     Indication: ISCHAEMIC CARDIOMYOPATHY
     Dosage: 5 MG, QD
     Route: 048
  10. DAFALGAN [Concomitant]
     Active Substance: ACETAMINOPHEN
     Indication: PRODUCT USED FOR UNKNOWN INDICATION
     Dosage: 500 MG
     Route: 048
  11. SIMVASTATINE [Concomitant]
     Active Substance: SIMVASTATIN
     Indication: ISCHAEMIC CARDIOMYOPATHY
     Dosage: 40 MG, QD
     Route: 048
  12. KARDEGIC [Concomitant]
     Active Substance: ASPIRIN DL-LYSINE
     Indication: ISCHAEMIC CARDIOMYOPATHY
     Dosage: 75 MG, QD (POWDER FOR DRINKABLE SOLUTION IN A PACKET DOSE)
     Route: 048

REACTIONS (1)
  - Bicytopenia [Recovered/Resolved]

NARRATIVE: CASE EVENT DATE: 20200109
